FAERS Safety Report 20166089 (Version 1)
Quarter: 2021Q4

REPORT INFORMATION
  Report Type: Spontaneous
  Country: BR (occurrence: BR)
  Receive Date: 20211209
  Receipt Date: 20211209
  Transmission Date: 20220303
  Serious: Yes (Disabling)
  Sender: FDA-Public Use
  Company Number: BR-ABBVIE-21K-020-4192564-00

PATIENT
  Sex: Female

DRUGS (2)
  1. RINVOQ [Suspect]
     Active Substance: UPADACITINIB
     Indication: Rheumatoid arthritis
     Dosage: 1 TABLET FROM 3 OR 4 MONTHS AGO
     Route: 048
     Dates: start: 2021, end: 20211201
  2. OMEPRAZOLE [Concomitant]
     Active Substance: OMEPRAZOLE
     Indication: Gastritis
     Dosage: 1 TABLET?MORE THAN 3 YEARS AGO ?IN USE
     Route: 048

REACTIONS (4)
  - Hypoacusis [Not Recovered/Not Resolved]
  - Spinal pain [Unknown]
  - Insomnia [Unknown]
  - Tinnitus [Unknown]

NARRATIVE: CASE EVENT DATE: 20210101
